FAERS Safety Report 24640787 (Version 1)
Quarter: 2024Q4

REPORT INFORMATION
  Report Type: Spontaneous
  Country: NP (occurrence: NP)
  Receive Date: 20241120
  Receipt Date: 20241120
  Transmission Date: 20250114
  Serious: Yes (Hospitalization, Other)
  Sender: RANBAXY
  Company Number: NP-SUN PHARMACEUTICAL INDUSTRIES LTD-2024R1-479700

PATIENT
  Age: 46 Year
  Sex: Male

DRUGS (1)
  1. MORPHINE [Suspect]
     Active Substance: MORPHINE
     Indication: Herpes simplex encephalitis
     Dosage: UNK
     Route: 065

REACTIONS (4)
  - Encephalitis [Unknown]
  - Drug abuse [Unknown]
  - Drug dependence [Unknown]
  - Pneumonia [Unknown]
